FAERS Safety Report 8427084-8 (Version None)
Quarter: 2012Q2

REPORT INFORMATION
  Report Type: 
  Country: None (occurrence: None)
  Receive Date: 20120611
  Receipt Date: 20120530
  Transmission Date: 20120825
  Serious: Yes (Hospitalization)
  Sender: FDA-Public Use
  Company Number: US-SHIRE-ALL1-2012-02710

PATIENT
  Sex: Male
  Weight: 31.746 kg

DRUGS (1)
  1. VYVANSE [Suspect]
     Indication: ATTENTION DEFICIT/HYPERACTIVITY DISORDER
     Dosage: 20 MG, 1X/DAY:QD
     Route: 048
     Dates: start: 20111201

REACTIONS (11)
  - NERVOUSNESS [None]
  - CONDITION AGGRAVATED [None]
  - INITIAL INSOMNIA [None]
  - SELF INJURIOUS BEHAVIOUR [None]
  - HEADACHE [None]
  - MOOD ALTERED [None]
  - TREMOR [None]
  - AFFECTIVE DISORDER [None]
  - DIZZINESS [None]
  - ABNORMAL BEHAVIOUR [None]
  - PRODUCT QUALITY ISSUE [None]
